FAERS Safety Report 16256813 (Version 1)
Quarter: 2019Q2

REPORT INFORMATION
  Report Type: Spontaneous
  Country: US (occurrence: US)
  Receive Date: 20190430
  Receipt Date: 20190430
  Transmission Date: 20190711
  Serious: No
  Sender: FDA-Public Use
  Company Number: US-SUNOVION-2019SUN001709

PATIENT
  Age: 54 Year
  Sex: Female
  Weight: 52.61 kg

DRUGS (6)
  1. LATUDA [Suspect]
     Active Substance: LURASIDONE HYDROCHLORIDE
     Indication: SCHIZOAFFECTIVE DISORDER BIPOLAR TYPE
     Dosage: 120 MG, QD
     Route: 048
  2. CLONAZEPAM. [Concomitant]
     Active Substance: CLONAZEPAM
     Indication: SLEEP DISORDER
     Dosage: 0.5 DF, AS NECESSARY
     Route: 048
  3. LATUDA [Suspect]
     Active Substance: LURASIDONE HYDROCHLORIDE
     Dosage: 80 UNK
     Route: 048
     Dates: end: 201904
  4. METOPROLOL. [Concomitant]
     Active Substance: METOPROLOL
     Indication: HYPOTENSION
     Dosage: 12.5 MG, QD
     Route: 048
  5. LATUDA [Suspect]
     Active Substance: LURASIDONE HYDROCHLORIDE
     Dosage: 60 UNK
     Route: 048
     Dates: start: 201904
  6. CLONAZEPAM. [Concomitant]
     Active Substance: CLONAZEPAM
     Indication: ANXIETY
     Dosage: 0.25 DF, HS
     Route: 048

REACTIONS (7)
  - Restlessness [Unknown]
  - Dyspnoea [Unknown]
  - Dizziness [Unknown]
  - Feeling abnormal [Unknown]
  - Hypotension [Unknown]
  - Fatigue [Unknown]
  - Off label use [Unknown]
